FAERS Safety Report 6559450-X (Version None)
Quarter: 2010Q1

REPORT INFORMATION
  Report Type: 
  Country: None (occurrence: None)
  Receive Date: 20100129
  Receipt Date: 20090908
  Transmission Date: 20100710
  Serious: No
  Sender: FDA-Public Use
  Company Number: US-ABBOTT-09P-163-0595810-00

PATIENT
  Sex: Male
  Weight: 65.376 kg

DRUGS (1)
  1. HUMIRA [Suspect]
     Indication: COLITIS ULCERATIVE
     Dosage: 80MG ;DAY 15
     Dates: start: 20090813

REACTIONS (4)
  - ANXIETY [None]
  - CHEST PAIN [None]
  - DYSPNOEA [None]
  - TOOTHACHE [None]
